FAERS Safety Report 15712847 (Version 1)
Quarter: 2018Q4

REPORT INFORMATION
  Report Type: Spontaneous
  Country: DE (occurrence: DE)
  Receive Date: 20181212
  Receipt Date: 20181212
  Transmission Date: 20190205
  Serious: Yes (Hospitalization, Congenital Anomaly)
  Sender: FDA-Public Use
  Company Number: DE-DRREDDYS-GER/GER/18/0105966

PATIENT
  Sex: Female
  Weight: 2.85 kg

DRUGS (3)
  1. IBUPROFEN. [Suspect]
     Active Substance: IBUPROFEN
     Indication: HEADACHE
     Dosage: UNK
     Route: 064
  2. IBUPROFEN. [Suspect]
     Active Substance: IBUPROFEN
     Indication: EXPOSURE DURING PREGNANCY
     Dosage: UNK
     Route: 064
  3. IBUPROFEN. [Suspect]
     Active Substance: IBUPROFEN
     Dosage: DOSAGE FORM: UNSPECIFIED, DAILY DOSE TEXT: INTRA-UTERINE

REACTIONS (14)
  - Ductus arteriosus stenosis foetal [Unknown]
  - Apgar score low [Unknown]
  - Neonatal cardiac failure [Recovered/Resolved]
  - Premature baby [Unknown]
  - Cardiomegaly [Unknown]
  - Foetal exposure during pregnancy [Unknown]
  - Pulmonary valve incompetence [Recovered/Resolved]
  - Ductus arteriosus premature closure [Recovered/Resolved with Sequelae]
  - Tricuspid valve incompetence [Recovered/Resolved]
  - Maternal exposure timing unspecified [Unknown]
  - Exposure during pregnancy [Unknown]
  - Cardiac hypertrophy [Not Recovered/Not Resolved]
  - Pulmonary valve incompetence [Unknown]
  - Right ventricular hypertrophy [Not Recovered/Not Resolved]

NARRATIVE: CASE EVENT DATE: 200209
